FAERS Safety Report 6402853-4 (Version None)
Quarter: 2009Q4

REPORT INFORMATION
  Report Type: 
  Country: None (occurrence: None)
  Receive Date: 20091016
  Receipt Date: 20091014
  Transmission Date: 20100525
  Serious: Yes (Hospitalization)
  Sender: FDA-Public Use
  Company Number: US-BIOGENIDEC-2009BI024965

PATIENT
  Age: 50 Year
  Sex: Female

DRUGS (2)
  1. AVONEX [Suspect]
     Indication: MULTIPLE SCLEROSIS
     Route: 030
     Dates: start: 20040831, end: 20090401
  2. AVONEX [Suspect]
     Route: 030

REACTIONS (4)
  - ABDOMINAL PAIN [None]
  - BACK PAIN [None]
  - GALLBLADDER OPERATION [None]
  - IMMUNE SYSTEM DISORDER [None]
